FAERS Safety Report 16397983 (Version 2)
Quarter: 2019Q2

REPORT INFORMATION
  Report Type: Spontaneous
  Country: PT (occurrence: PT)
  Receive Date: 20190606
  Receipt Date: 20190610
  Transmission Date: 20190711
  Serious: Yes (Hospitalization, Congenital Anomaly, Other)
  Sender: FDA-Public Use
  Company Number: PT-ALVOGEN-2019-ALVOGEN-099971

PATIENT
  Sex: Female
  Weight: 2.3 kg

DRUGS (2)
  1. LISINOPRIL. [Suspect]
     Active Substance: LISINOPRIL
     Indication: HYPERTENSION
     Dosage: 10.0MG UNKNOWN
     Route: 064
  2. METHYLDOPA. [Suspect]
     Active Substance: METHYLDOPA
     Indication: HYPERTENSION
     Dosage: 500.0MG UNKNOWN
     Route: 064

REACTIONS (11)
  - Cerebral atrophy [Unknown]
  - Angiotensin converting enzyme inhibitor foetopathy [Unknown]
  - Delayed fontanelle closure [Recovered/Resolved]
  - Anomaly of external ear congenital [Unknown]
  - Hypertonia neonatal [Recovered/Resolved]
  - Renal failure [Unknown]
  - Microcephaly [Recovered/Resolved]
  - Hypocalvaria [Recovered/Resolved]
  - Congenital nose malformation [Unknown]
  - Dysmorphism [Unknown]
  - Retrognathia [Unknown]
